FAERS Safety Report 19514555 (Version 6)
Quarter: 2024Q2

REPORT INFORMATION
  Report Type: Spontaneous
  Country: JP (occurrence: JP)
  Receive Date: 20210709
  Receipt Date: 20240610
  Transmission Date: 20240716
  Serious: Yes (Life-Threatening, Other)
  Sender: FDA-Public Use
  Company Number: JP-ABBVIE-21K-087-3985059-00

PATIENT
  Age: 78 Year
  Sex: Male

DRUGS (6)
  1. VENCLEXTA [Suspect]
     Active Substance: VENETOCLAX
     Indication: Acute myeloid leukaemia
     Route: 048
  2. VENCLEXTA [Suspect]
     Active Substance: VENETOCLAX
     Indication: Acute myeloid leukaemia
     Dosage: 1 COURSE
     Route: 048
     Dates: start: 20210708, end: 20210708
  3. VENCLEXTA [Suspect]
     Active Substance: VENETOCLAX
     Indication: Acute myeloid leukaemia
     Dosage: 200 MILLIGRAM
     Route: 048
  4. VENCLEXTA [Suspect]
     Active Substance: VENETOCLAX
     Indication: Acute myeloid leukaemia
     Dosage: 3 COURSE
     Route: 048
  5. VIDAZA [Suspect]
     Active Substance: AZACITIDINE
     Indication: Acute myeloid leukaemia
     Dosage: 110 MG/M2
     Route: 041
     Dates: start: 20210708, end: 20210708
  6. FLUCONAZOLE [Concomitant]
     Active Substance: FLUCONAZOLE
     Indication: Product used for unknown indication
     Dosage: 110 MILLIGRAM
     Route: 041
     Dates: start: 202112

REACTIONS (8)
  - Arrhythmia [Recovered/Resolved]
  - Shock [Recovered/Resolved]
  - Atrioventricular block complete [Unknown]
  - Tumour lysis syndrome [Recovered/Resolved]
  - Dysphoria [Unknown]
  - Cold sweat [Unknown]
  - Ventricular tachycardia [Unknown]
  - Defaecation urgency [Unknown]

NARRATIVE: CASE EVENT DATE: 20210708
